FAERS Safety Report 5216708-4 (Version None)
Quarter: 2007Q1

REPORT INFORMATION
  Report Type: 
  Country: None (occurrence: None)
  Receive Date: 20061130
  Receipt Date: 20060302
  Transmission Date: 20070707
  Serious: Yes (Hospitalization)
  Sender: FDA-Public Use
  Company Number: US200605002166

PATIENT
  Age: 41 Year
  Sex: Female
  Weight: 59 kg

DRUGS (9)
  1. ZYPREXA [Suspect]
     Dosage: SEE IMAGE
     Dates: start: 19980101
  2. ZYPREXA [Suspect]
     Dosage: SEE IMAGE
     Dates: start: 20050101
  3. ARIPIPRAZOLE (ARIPIPRAZOLE) [Concomitant]
  4. HALOPERIDOL [Concomitant]
  5. VALPROATE SODIUM [Concomitant]
  6. BUPROPION HCL [Concomitant]
  7. FLUOXETINE [Concomitant]
  8. PAROXETINE [Concomitant]
  9. PROPRANOLOL [Concomitant]

REACTIONS (4)
  - CHEST PAIN [None]
  - DIABETES MELLITUS [None]
  - PANCREATITIS [None]
  - PRESCRIBED OVERDOSE [None]
